FAERS Safety Report 8288321-6 (Version None)
Quarter: 2012Q2

REPORT INFORMATION
  Report Type: 
  Country: None (occurrence: None)
  Receive Date: 20120416
  Receipt Date: 20111019
  Transmission Date: 20120825
  Serious: No
  Sender: FDA-Public Use
  Company Number: US-SANOFI-AVENTIS-2011SA070067

PATIENT
  Sex: Female

DRUGS (3)
  1. CLOMID [Suspect]
     Indication: IN VITRO FERTILISATION
     Route: 065
  2. ESTRADIOL [Suspect]
     Indication: IN VITRO FERTILISATION
     Route: 065
  3. PROGESTERONE [Suspect]
     Indication: IN VITRO FERTILISATION
     Route: 065

REACTIONS (1)
  - BLOOD FOLLICLE STIMULATING HORMONE DECREASED [None]
